FAERS Safety Report 12437390 (Version 1)
Quarter: 2016Q2

REPORT INFORMATION
  Report Type: Spontaneous
  Country: US (occurrence: None)
  Receive Date: 20160603
  Receipt Date: 20160603
  Transmission Date: 20160815
  Serious: Yes (Other)
  Sender: FDA-Public Use
  Company Number: None

PATIENT
  Age: 44 Year
  Sex: Female
  Weight: 72.58 kg

DRUGS (5)
  1. DAILY MULTI-VITAMIN [Concomitant]
     Active Substance: VITAMINS
  2. PANTOPRAZOLE SOD DR [Concomitant]
  3. TOPIRAMATE. [Concomitant]
     Active Substance: TOPIRAMATE
  4. AMPHETAMINE SALTS [Suspect]
     Active Substance: AMPHETAMINE ASPARTATE\AMPHETAMINE SULFATE\DEXTROAMPHETAMINE SACCHARATE\DEXTROAMPHETAMINE SULFATE
     Indication: ATTENTION DEFICIT/HYPERACTIVITY DISORDER
     Route: 048
     Dates: start: 20160415
  5. BIOTIN SUPPLEMENT [Concomitant]

REACTIONS (13)
  - Attention deficit/hyperactivity disorder [None]
  - Disturbance in attention [None]
  - Apathy [None]
  - Drug dose omission [None]
  - Depression [None]
  - Product substitution issue [None]
  - Product quality issue [None]
  - Drug ineffective [None]
  - Anger [None]
  - Condition aggravated [None]
  - Depressed mood [None]
  - Emotional disorder [None]
  - Crying [None]

NARRATIVE: CASE EVENT DATE: 20160415
